FAERS Safety Report 7567554 (Version 4)
Quarter: 2014Q1

REPORT INFORMATION
  Report Type: Spontaneous
  Country: US (occurrence: US)
  Receive Date: 20100831
  Receipt Date: 20140122
  Transmission Date: 20141002
  Serious: Yes (Other)
  Sender: FDA-Public Use
  Company Number: US-BAYER-201031845NA

PATIENT
  Age: 27 Year
  Sex: Female
  Weight: 64.4 kg

DRUGS (38)
  1. YAZ [Suspect]
     Indication: CONTRACEPTION
     Dosage: UNK
     Route: 048
     Dates: start: 20091101, end: 201002
  2. YAZ [Suspect]
     Indication: PREMENSTRUAL SYNDROME
  3. YASMIN [Suspect]
     Indication: CONTRACEPTION
     Route: 048
     Dates: start: 20030529, end: 20080714
  4. YASMIN [Suspect]
     Indication: PREMENSTRUAL SYNDROME
  5. OCELLA [Suspect]
     Indication: CONTRACEPTION
     Dosage: UNK
     Route: 048
     Dates: start: 20080715, end: 200911
  6. OCELLA [Suspect]
     Indication: PREMENSTRUAL SYNDROME
  7. AZITHROMYCIN [Concomitant]
  8. VITAMIN C [Concomitant]
  9. IBUPROFEN [Concomitant]
  10. ADVIL [Concomitant]
  11. ALEVE [Concomitant]
  12. ASTELIN [Concomitant]
     Route: 045
  13. NERVOUS SYSTEM [Concomitant]
     Indication: ATTENTION DEFICIT/HYPERACTIVITY DISORDER
     Dosage: UNK UNK, QD
     Route: 048
     Dates: start: 20090713
  14. LUNESTA [Concomitant]
     Indication: INSOMNIA
  15. CICLESONIDE [Concomitant]
     Indication: MULTIPLE ALLERGIES
     Dosage: UNK
     Dates: start: 200811
  16. PRISTIQ [Concomitant]
     Indication: DEPRESSION
     Dosage: UNK
     Route: 048
  17. PRISTIQ [Concomitant]
     Indication: GASTRIC DISORDER
  18. CARISOPRODOL [Concomitant]
     Indication: MUSCLE RELAXANT THERAPY
     Dosage: UNK
     Dates: start: 200907
  19. OMEPRAZOLE [Concomitant]
     Indication: DYSPEPSIA
     Dosage: UNK
     Dates: start: 200905
  20. SERTRALINE [Concomitant]
     Indication: GASTRIC DISORDER
     Dosage: UNK
     Route: 048
     Dates: start: 200807, end: 200811
  21. FLUTICASONE [Concomitant]
     Dosage: UNK
     Dates: start: 200802, end: 200811
  22. METHYLPREDNISOLON [Concomitant]
     Indication: JOINT INJURY
     Dosage: UNK
     Dates: start: 200802, end: 200811
  23. AMITRIPTYLINE [Concomitant]
     Indication: SLEEP DISORDER
     Dosage: UNK
     Route: 048
     Dates: start: 200810, end: 200811
  24. ETODOLAC [Concomitant]
     Indication: ANTIINFLAMMATORY THERAPY
     Dosage: UNK
     Route: 048
     Dates: start: 200810, end: 200811
  25. MINOCYCLINE [Concomitant]
     Indication: DERMATITIS
     Dosage: UNK
     Dates: start: 200811, end: 200812
  26. CONCERTA [Concomitant]
     Dosage: UNK
     Dates: start: 200901
  27. SITREX [Concomitant]
  28. DEXTROMETHORPHAN W/GUAIFENESIN/PSEUDOEPHEDRIN [Concomitant]
  29. CYMBALTA [Concomitant]
     Indication: STRESS
     Dosage: UNK
     Dates: start: 200907
  30. PEPCID [Concomitant]
     Indication: GASTROOESOPHAGEAL REFLUX DISEASE
  31. FLUTICASONE PROPIONATE [Concomitant]
     Dosage: UNK
     Route: 045
  32. ARTHROTEC [DICLOFENAC SODIUM] [Concomitant]
     Indication: NECK PAIN
     Dosage: UNK
     Dates: start: 20090928
  33. ARTHROTEC [DICLOFENAC SODIUM] [Concomitant]
     Indication: MUSCULOSKELETAL PAIN
  34. CLINDAMYCIN PHOSPHATE [Concomitant]
     Route: 061
  35. FIBERCON [Concomitant]
     Dosage: UNK
     Route: 048
     Dates: start: 20090928
  36. LIBRAX [Concomitant]
  37. LUNESTA [Concomitant]
     Route: 048
  38. SOLODYN [Concomitant]
     Indication: DERMATITIS
     Dosage: UNK
     Dates: start: 200811, end: 200812

REACTIONS (3)
  - Gallbladder disorder [None]
  - Biliary dyskinesia [Unknown]
  - Cholecystitis chronic [Unknown]
